FAERS Safety Report 4809886-X (Version None)
Quarter: 2005Q4

REPORT INFORMATION
  Report Type: 
  Country: None (occurrence: None)
  Receive Date: 20051024
  Receipt Date: 20051013
  Transmission Date: 20060501
  Serious: Yes (Other)
  Sender: FDA-Public Use
  Company Number: 2005142348

PATIENT
  Sex: Male

DRUGS (2)
  1. GEODON [Suspect]
     Indication: ILL-DEFINED DISORDER
     Dosage: 60 MG
  2. ZYPREXA [Suspect]
     Indication: ILL-DEFINED DISORDER

REACTIONS (3)
  - AKATHISIA [None]
  - EYE ROLLING [None]
  - WEIGHT INCREASED [None]
